FAERS Safety Report 22246791 (Version 1)
Quarter: 2023Q2

REPORT INFORMATION
  Report Type: Spontaneous
  Country: GB (occurrence: GB)
  Receive Date: 20230424
  Receipt Date: 20230424
  Transmission Date: 20230722
  Serious: Yes (Hospitalization, Other)
  Sender: FDA-Public Use
  Company Number: GB-Hikma Pharmaceuticals-GB-H14001-23-00933

PATIENT
  Age: 68 Year
  Sex: Female
  Weight: 52 kg

DRUGS (3)
  1. CARBOPLATIN [Suspect]
     Active Substance: CARBOPLATIN
     Indication: Anal cancer
     Dosage: AUC 5 ON DAY 1 OF EACH 28-DAY CYCLE;
     Route: 042
     Dates: start: 20220915
  2. PACLITAXEL [Suspect]
     Active Substance: PACLITAXEL
     Indication: Anal cancer
     Dosage: ON DAY 1, 8, AND 15 OF EACH 28-DAY CYCLE
     Route: 042
     Dates: start: 20220915, end: 20230216
  3. RETIFANLIMAB [Suspect]
     Active Substance: RETIFANLIMAB
     Indication: Anal cancer
     Dosage: ,28-DAY CYCLE
     Route: 042
     Dates: start: 20220915, end: 20230216

REACTIONS (25)
  - Basophil count increased [Unknown]
  - Blood thyroid stimulating hormone increased [Unknown]
  - Aphasia [Unknown]
  - Muscular weakness [Unknown]
  - Headache [Unknown]
  - Nodule [Unknown]
  - Pulmonary mass [Unknown]
  - Bladder wall calcification [Unknown]
  - Ovarian cyst [Unknown]
  - Inguinal hernia [Unknown]
  - Scoliosis [Unknown]
  - Venous angioma of brain [Unknown]
  - Spinal osteoarthritis [Unknown]
  - Blood urea decreased [Unknown]
  - Tri-iodothyronine free decreased [Unknown]
  - Blood prolactin increased [Unknown]
  - Basal ganglia infarction [Unknown]
  - Cerebral infarction [Unknown]
  - Spinal fracture [Unknown]
  - Blood sodium decreased [Unknown]
  - Vomiting [Unknown]
  - White blood cell count decreased [Unknown]
  - Neutrophil count decreased [Unknown]
  - Syncope [Recovering/Resolving]
  - Spinal compression fracture [Recovering/Resolving]

NARRATIVE: CASE EVENT DATE: 20230214
